FAERS Safety Report 9308465 (Version 1)
Quarter: 2013Q2

REPORT INFORMATION
  Report Type: Spontaneous
  Country: FR (occurrence: FR)
  Receive Date: 20130524
  Receipt Date: 20130524
  Transmission Date: 20140414
  Serious: Yes (Hospitalization, Other)
  Sender: FDA-Public Use
  Company Number: FR-BRISTOL-MYERS SQUIBB COMPANY-18904615

PATIENT
  Age: 63 Year
  Sex: Female

DRUGS (4)
  1. NIFLURIL CAPS 250 MG [Suspect]
  2. COLCHICINE [Interacting]
     Route: 048
     Dates: start: 20130325, end: 20130327
  3. COTAREG [Interacting]
     Indication: HYPERTENSION
     Dosage: 1DF: 80 MG/12,5 MG, FILM-COATED TABLET
     Route: 048
     Dates: end: 20130327
  4. METFORMIN HCL [Suspect]
     Dates: end: 20130327

REACTIONS (6)
  - Renal failure acute [Recovering/Resolving]
  - Hyperkalaemia [Recovered/Resolved]
  - Vomiting [Recovered/Resolved]
  - Diarrhoea [Recovered/Resolved]
  - Weight decreased [Recovering/Resolving]
  - Drug interaction [Unknown]
